FAERS Safety Report 25631479 (Version 2)
Quarter: 2025Q3

REPORT INFORMATION
  Report Type: Spontaneous
  Country: US (occurrence: US)
  Receive Date: 20250801
  Receipt Date: 20250814
  Transmission Date: 20251020
  Serious: No
  Sender: SUNOVION
  Company Number: US-SMPA-2025SPA009730AA

PATIENT
  Age: 73 Year
  Sex: Female

DRUGS (2)
  1. GEMTESA [Suspect]
     Active Substance: VIBEGRON
     Indication: Urinary incontinence
     Dosage: 75 MG, QD (1X A DAY/UNKNOWN DOSE)
     Route: 048
     Dates: start: 20250727, end: 20250804
  2. GEMTESA [Suspect]
     Active Substance: VIBEGRON
     Indication: Hypertonic bladder

REACTIONS (7)
  - Condition aggravated [Unknown]
  - Eructation [Unknown]
  - Rhinorrhoea [Unknown]
  - Urinary incontinence [Unknown]
  - Diarrhoea [Not Recovered/Not Resolved]
  - Urinary tract infection [Unknown]
  - Drug ineffective [Unknown]
